FAERS Safety Report 7970926-0 (Version None)
Quarter: 2011Q4

REPORT INFORMATION
  Report Type: 
  Country: None (occurrence: None)
  Receive Date: 20111122
  Receipt Date: 20110801
  Transmission Date: 20120403
  Serious: No
  Sender: FDA-Public Use
  Company Number: PHHY2011US36728

PATIENT
  Age: 48 Year
  Sex: Female
  Weight: 55.8 kg

DRUGS (1)
  1. GILENYA [Suspect]
     Indication: MULTIPLE SCLEROSIS
     Dosage: 0.5 MG, ORAL
     Route: 048
     Dates: start: 20110225

REACTIONS (2)
  - FATIGUE [None]
  - ABDOMINAL PAIN [None]
